FAERS Safety Report 9595475 (Version 2)
Quarter: 2013Q4

REPORT INFORMATION
  Report Type: Report from Study
  Country: US (occurrence: US)
  Receive Date: 20131004
  Receipt Date: 20131004
  Transmission Date: 20140711
  Serious: Yes (Other)
  Sender: FDA-Public Use
  Company Number: US-ABBVIE-08P-163-0462229-00

PATIENT
  Sex: Male

DRUGS (1)
  1. HUMIRA [Suspect]
     Indication: MATERNAL EXPOSURE TIMING UNSPECIFIED
     Route: 064

REACTIONS (9)
  - Placental transfusion syndrome [Recovered/Resolved]
  - Jaundice [Unknown]
  - Premature baby [Not Recovered/Not Resolved]
  - Foetal exposure during pregnancy [Unknown]
  - Tachypnoea [Unknown]
  - Dyspnoea [Unknown]
  - Temperature regulation disorder [Unknown]
  - White blood cell count decreased [Unknown]
  - Bronchopulmonary dysplasia [Unknown]
